FAERS Safety Report 11649594 (Version 1)
Quarter: 2015Q4

REPORT INFORMATION
  Report Type: Spontaneous
  Country: CA (occurrence: CA)
  Receive Date: 20151021
  Receipt Date: 20151021
  Transmission Date: 20160304
  Serious: Yes (Other)
  Sender: FDA-Public Use
  Company Number: PHHY2015CA134561

PATIENT
  Age: 22 Year
  Sex: Male

DRUGS (1)
  1. BUPROPION. [Suspect]
     Active Substance: BUPROPION
     Indication: DEPRESSION
     Dosage: 300 MG, UNK
     Route: 042

REACTIONS (6)
  - Drug administration error [Unknown]
  - Peripheral swelling [Unknown]
  - Drug abuse [Unknown]
  - Persecutory delusion [Unknown]
  - Hallucination, visual [Recovered/Resolved]
  - Injection site pain [Unknown]
